FAERS Safety Report 5677240-7 (Version None)
Quarter: 2008Q1

REPORT INFORMATION
  Report Type: 
  Country: None (occurrence: None)
  Receive Date: 20080321
  Receipt Date: 20080321
  Transmission Date: 20080703
  Serious: Yes (Other)
  Sender: FDA-Public Use
  Company Number: None

PATIENT
  Sex: Female
  Weight: 48.0813 kg

DRUGS (1)
  1. TRASYLOL [Suspect]
     Indication: HAEMOSTASIS

REACTIONS (2)
  - RENAL FAILURE [None]
  - RESPIRATORY TRACT INFECTION [None]
